FAERS Safety Report 9115996 (Version 2)
Quarter: 2013Q2

REPORT INFORMATION
  Report Type: Spontaneous
  Country: FR (occurrence: FR)
  Receive Date: 20130225
  Receipt Date: 20130618
  Transmission Date: 20140414
  Serious: Yes (Hospitalization, Disabling, Other)
  Sender: FDA-Public Use
  Company Number: FR-ASTRAZENECA-2013SE11236

PATIENT
  Age: 20320 Day
  Sex: Male
  Weight: 85 kg

DRUGS (6)
  1. CRESTOR [Suspect]
     Route: 048
     Dates: start: 20050426, end: 20110209
  2. CRESTOR [Suspect]
     Route: 048
     Dates: start: 20110209, end: 20130310
  3. MICARDIS PLUS [Interacting]
     Indication: HYPERTENSION
     Dosage: 40 / 12.5 MG
     Route: 065
     Dates: start: 20091020
  4. TEMERIT [Interacting]
     Indication: HYPERTENSION
     Route: 065
     Dates: start: 20110209
  5. ADENURIC [Interacting]
     Indication: GOUT
     Route: 048
     Dates: start: 20120902, end: 20130310
  6. INEXIUM [Concomitant]
     Indication: GASTROOESOPHAGEAL REFLUX DISEASE
     Dates: start: 20050426, end: 20130310

REACTIONS (4)
  - Drug interaction [Unknown]
  - Tendon rupture [Recovered/Resolved with Sequelae]
  - Phlebitis [Unknown]
  - Gout [Unknown]
